FAERS Safety Report 15905931 (Version 1)
Quarter: 2019Q1

REPORT INFORMATION
  Report Type: Spontaneous
  Country: US (occurrence: US)
  Receive Date: 20190202
  Receipt Date: 20190202
  Transmission Date: 20190417
  Serious: Yes (Hospitalization)
  Sender: FDA-Public Use
  Company Number: None

PATIENT
  Age: 50 Year
  Sex: Female
  Weight: 102.15 kg

DRUGS (5)
  1. KEPPRA [Concomitant]
     Active Substance: LEVETIRACETAM
  2. MAGNESIUM [Concomitant]
     Active Substance: MAGNESIUM
  3. VIMPAT [Concomitant]
     Active Substance: LACOSAMIDE
  4. VIT B 100 COMPLEX [Concomitant]
  5. TAMIFLU [Suspect]
     Active Substance: OSELTAMIVIR PHOSPHATE
     Indication: INFLUENZA
     Dosage: ?          QUANTITY:2 CAPSULE(S);?
     Route: 048
     Dates: start: 20181027, end: 20181028

REACTIONS (5)
  - Generalised tonic-clonic seizure [None]
  - Amnesia [None]
  - Fall [None]
  - Jaw fracture [None]
  - Spinal column injury [None]

NARRATIVE: CASE EVENT DATE: 20181028
